FAERS Safety Report 12174232 (Version 1)
Quarter: 2016Q1

REPORT INFORMATION
  Report Type: Spontaneous
  Country: US (occurrence: US)
  Receive Date: 20160314
  Receipt Date: 20160314
  Transmission Date: 20160526
  Serious: Yes (Other)
  Sender: FDA-Public Use
  Company Number: US-ROCHE-1723191

PATIENT
  Sex: Female

DRUGS (1)
  1. TAMIFLU [Suspect]
     Active Substance: OSELTAMIVIR PHOSPHATE
     Indication: ANTIVIRAL PROPHYLAXIS
     Route: 065

REACTIONS (5)
  - Dizziness [Unknown]
  - Dysgeusia [Unknown]
  - Parosmia [Unknown]
  - Nausea [Unknown]
  - Hallucination [Unknown]
